FAERS Safety Report 10387781 (Version 2)
Quarter: 2014Q3

REPORT INFORMATION
  Report Type: Report from Study
  Country: US (occurrence: US)
  Receive Date: 20140815
  Receipt Date: 20140905
  Transmission Date: 20150326
  Serious: Yes (Hospitalization)
  Sender: FDA-Public Use
  Company Number: US-ACTELION-A-US2014-103539

PATIENT
  Age: 45 Year
  Sex: Female

DRUGS (1)
  1. VELETRI [Suspect]
     Active Substance: EPOPROSTENOL
     Indication: PULMONARY ARTERIAL HYPERTENSION
     Dosage: 14 UNK, UNK
     Route: 042
     Dates: start: 20130916

REACTIONS (15)
  - Renal disorder [Unknown]
  - Fibromyalgia [Unknown]
  - Contusion [Unknown]
  - Fall [Unknown]
  - Pain [Unknown]
  - Pneumonia [Unknown]
  - Pulmonary arterial hypertension [Unknown]
  - Dyspnoea [Unknown]
  - Chest pain [Unknown]
  - Dehydration [Unknown]
  - Pyrexia [Unknown]
  - Chills [Unknown]
  - Kidney infection [Unknown]
  - Back pain [Unknown]
  - Pollakiuria [Unknown]
